FAERS Safety Report 21304571 (Version 1)
Quarter: 2022Q3

REPORT INFORMATION
  Report Type: Spontaneous
  Country: US (occurrence: None)
  Receive Date: 20220907
  Receipt Date: 20220907
  Transmission Date: 20221027
  Serious: No
  Sender: FDA-Public Use
  Company Number: US-ARIS GLOBAL-202108-1512

PATIENT
  Sex: Female

DRUGS (33)
  1. OXERVATE [Suspect]
     Active Substance: CENEGERMIN-BKBJ
     Indication: Neurotrophic keratopathy
     Route: 047
     Dates: start: 20210804
  2. SKELAXIN [Concomitant]
     Active Substance: METAXALONE
  3. BIOTIN [Concomitant]
     Active Substance: BIOTIN
  4. DIGOXIN [Concomitant]
     Active Substance: DIGOXIN
  5. ALPRAZOLAM [Concomitant]
     Active Substance: ALPRAZOLAM
  6. SYNTHROID [Concomitant]
     Active Substance: LEVOTHYROXINE SODIUM
  7. ZYLET [Concomitant]
     Active Substance: LOTEPREDNOL ETABONATE\TOBRAMYCIN
     Dosage: 0.3%-0.5% DROPS SUSPENSION
  8. LATANOPROST [Concomitant]
     Active Substance: LATANOPROST
  9. PYRIDOXINE [Concomitant]
     Active Substance: PYRIDOXINE
  10. VITAMIN D3 [Concomitant]
     Active Substance: CHOLECALCIFEROL
  11. TYLENOL [Concomitant]
     Active Substance: ACETAMINOPHEN
  12. TYLENOL [Concomitant]
     Active Substance: ACETAMINOPHEN
  13. ZOCOR [Concomitant]
     Active Substance: SIMVASTATIN
  14. PROBIOTIC + ACIDOPHILUS [Concomitant]
  15. PANTOPRAZOLE SODIUM [Concomitant]
     Active Substance: PANTOPRAZOLE SODIUM
  16. NYSTATIN [Concomitant]
     Active Substance: NYSTATIN
     Dosage: 100000/ML ORAL SUSPENSION
  17. VITAMINS [Concomitant]
     Active Substance: VITAMINS
  18. SINGULAIR [Concomitant]
     Active Substance: MONTELUKAST SODIUM
  19. METOPROLOL SUCCINATE [Concomitant]
     Active Substance: METOPROLOL SUCCINATE
  20. METHOTREXATE [Concomitant]
     Active Substance: METHOTREXATE
  21. LOTEMAX [Concomitant]
     Active Substance: LOTEPREDNOL ETABONATE
     Dosage: 0.5 % DROPS GEL
  22. LOSARTAN POTASSIUM [Concomitant]
     Active Substance: LOSARTAN POTASSIUM
  23. INFLAMMA-K [Concomitant]
     Dosage: 1.5-10-6 % KIT
  24. INCRUSE ELLIPTA [Concomitant]
     Active Substance: UMECLIDINIUM BROMIDE
  25. GABAPENTIN [Concomitant]
     Active Substance: GABAPENTIN
  26. FUROSEMIDE [Concomitant]
     Active Substance: FUROSEMIDE
  27. FISH OIL [Concomitant]
     Active Substance: FISH OIL
     Dosage: 100-150 MG CAPSULE
  28. FENOFIBRATE [Concomitant]
     Active Substance: FENOFIBRATE
  29. CIMZIA [Concomitant]
     Active Substance: CERTOLIZUMAB PEGOL
     Dosage: 400 MG/2 ML SYRINGE KIT
  30. CELEBREX [Concomitant]
     Active Substance: CELECOXIB
  31. GLUCOSAMINE-CHONDROITIN-MSM [Concomitant]
  32. ZYRTEC [Concomitant]
     Active Substance: CETIRIZINE HYDROCHLORIDE
  33. ASPIRIN [Concomitant]
     Active Substance: ASPIRIN

REACTIONS (1)
  - Photophobia [Unknown]
